FAERS Safety Report 6735942-5 (Version None)
Quarter: 2010Q2

REPORT INFORMATION
  Report Type: 
  Country: None (occurrence: None)
  Receive Date: 20100521
  Receipt Date: 20100514
  Transmission Date: 20101027
  Serious: Yes (Hospitalization)
  Sender: FDA-Public Use
  Company Number: B0652867A

PATIENT
  Sex: Male

DRUGS (7)
  1. ZELITREX [Suspect]
     Route: 048
     Dates: start: 20091108, end: 20091111
  2. AUGMENTIN '125' [Suspect]
     Indication: DRUG USE FOR UNKNOWN INDICATION
     Dosage: 3G PER DAY
     Route: 048
     Dates: start: 20091108, end: 20091117
  3. ATROVENT [Suspect]
     Indication: BRONCHOSPASM
     Dosage: 3UNIT PER DAY
     Route: 065
     Dates: start: 20091108, end: 20091117
  4. BRICANYL [Suspect]
     Indication: BRONCHOSPASM
     Dosage: 3UNIT PER DAY
     Route: 048
     Dates: start: 20091108, end: 20091117
  5. NEXIUM [Suspect]
     Dosage: 20MG PER DAY
     Route: 048
  6. TAMSULOSINE [Concomitant]
     Dosage: .4MG PER DAY
     Route: 048
  7. TENSTATEN [Concomitant]
     Dosage: 50MG PER DAY
     Route: 048
     Dates: end: 20091108

REACTIONS (2)
  - AGITATION [None]
  - CONFUSIONAL STATE [None]
